FAERS Safety Report 6824776-9 (Version None)
Quarter: 2010Q3

REPORT INFORMATION
  Report Type: 
  Country: None (occurrence: None)
  Receive Date: 20100708
  Receipt Date: 20061116
  Transmission Date: 20110219
  Serious: Yes (Other)
  Sender: FDA-Public Use
  Company Number: US-PFIZER INC-2006143152

PATIENT
  Sex: Male
  Weight: 127.01 kg

DRUGS (8)
  1. CHANTIX [Suspect]
     Indication: SMOKING CESSATION THERAPY
     Dates: start: 20061001
  2. MULTI-VITAMINS [Concomitant]
  3. ECHINACEA [Concomitant]
  4. SAW PALMETTO [Concomitant]
  5. MAGNESIUM CITRATE [Concomitant]
  6. VITAMIN D [Concomitant]
  7. GINKO BILOBA [Concomitant]
  8. ACETYLSALICYLIC ACID [Concomitant]

REACTIONS (2)
  - FEELING ABNORMAL [None]
  - SUPRAVENTRICULAR TACHYCARDIA [None]
